FAERS Safety Report 19464331 (Version 1)
Quarter: 2021Q2

REPORT INFORMATION
  Report Type: Spontaneous
  Country: IT (occurrence: IT)
  Receive Date: 20210627
  Receipt Date: 20210627
  Transmission Date: 20210717
  Serious: Yes (Other)
  Sender: FDA-Public Use
  Company Number: IT-AUROBINDO-AUR-APL-2021-026635

PATIENT
  Age: 22 Year
  Sex: Male

DRUGS (3)
  1. ARIPIPRAZOLE. [Suspect]
     Active Substance: ARIPIPRAZOLE
     Indication: BIPOLAR DISORDER
     Dosage: 5 MILLIGRAM, ONCE A DAY (STARTED ON THE FIFTH DAY)
     Route: 065
  2. GABAPENTIN. [Concomitant]
     Active Substance: GABAPENTIN
     Indication: HICCUPS
     Dosage: 100 MILLIGRAM
     Route: 065
  3. LITHIUM SULFATE [Concomitant]
     Active Substance: LITHIUM SULFATE
     Indication: BIPOLAR DISORDER
     Dosage: INTRODUCED ON THE FIRST DAY
     Route: 065

REACTIONS (2)
  - Hiccups [Recovered/Resolved]
  - Off label use [Unknown]
